FAERS Safety Report 7916571-4 (Version None)
Quarter: 2011Q4

REPORT INFORMATION
  Report Type: 
  Country: None (occurrence: None)
  Receive Date: 20111115
  Receipt Date: 20111028
  Transmission Date: 20120403
  Serious: Yes (Other)
  Sender: FDA-Public Use
  Company Number: 2011030210

PATIENT
  Age: 45 Year
  Sex: Male
  Weight: 65.7716 kg

DRUGS (12)
  1. ADVAIR DISKUS 100/50 [Concomitant]
  2. ALENDRONATE SODIUM [Concomitant]
  3. CLARITIN [Concomitant]
  4. SPIRIVA [Concomitant]
  5. ZEMAIRA [Suspect]
     Indication: ALPHA-1 ANTI-TRYPSIN DEFICIENCY
     Dosage: (60 MG/KG WEEKLY INTRAVENOUS (NOT OTHERWISE SPECIFIED)), (60 MG/KG 1X/WEEK, 0.08 ML/KG/MIN (5.3 ML P
     Route: 042
     Dates: start: 20060228
  6. ZEMAIRA [Suspect]
     Indication: ALPHA-1 ANTI-TRYPSIN DEFICIENCY
     Dosage: (60 MG/KG WEEKLY INTRAVENOUS (NOT OTHERWISE SPECIFIED)), (60 MG/KG 1X/WEEK, 0.08 ML/KG/MIN (5.3 ML P
     Route: 042
     Dates: start: 20111001
  7. AUGMENTIN [Concomitant]
  8. GUAIFENESIN [Concomitant]
  9. LORAZEPAM [Concomitant]
  10. ALBUTEROL [Concomitant]
  11. VITAMIN D [Concomitant]
  12. ACETAMINOPHEN [Concomitant]

REACTIONS (3)
  - PRODUCTIVE COUGH [None]
  - RESPIRATORY TRACT INFECTION [None]
  - BODY TEMPERATURE INCREASED [None]
